FAERS Safety Report 18932706 (Version 1)
Quarter: 2021Q1

REPORT INFORMATION
  Report Type: Spontaneous
  Country: US (occurrence: US)
  Receive Date: 20210223
  Receipt Date: 20210223
  Transmission Date: 20210420
  Serious: Yes (Other)
  Sender: FDA-Public Use
  Company Number: None

PATIENT
  Age: 29 Year
  Sex: Female
  Weight: 63.5 kg

DRUGS (1)
  1. BUPRENORPHINE/NALOXONE 8?2MG SL TABLETS [Suspect]
     Active Substance: BUPRENORPHINE HYDROCHLORIDE\NALOXONE HYDROCHLORIDE
     Indication: DRUG USE DISORDER
     Dates: start: 20201125

REACTIONS (6)
  - Retching [None]
  - Product use issue [None]
  - Incorrect dose administered [None]
  - Nausea [None]
  - Vomiting [None]
  - Withdrawal syndrome [None]

NARRATIVE: CASE EVENT DATE: 20210222
